FAERS Safety Report 24632316 (Version 1)
Quarter: 2024Q4

REPORT INFORMATION
  Report Type: Spontaneous
  Country: US (occurrence: None)
  Receive Date: 20241118
  Receipt Date: 20241118
  Transmission Date: 20250115
  Serious: Yes (Hospitalization)
  Sender: Public
  Company Number: None

PATIENT
  Age: 75 Year
  Sex: Male
  Weight: 73 kg

DRUGS (2)
  1. LITHIUM CARBONATE [Suspect]
     Active Substance: LITHIUM CARBONATE
     Indication: Bipolar disorder
     Dosage: FREQUENCY : TWICE A DAY;?
     Route: 048
     Dates: start: 20240616, end: 20240927
  2. AMILORIDE HCL W/ HYDROCHLOROTHIAZIDE [Suspect]
     Active Substance: AMILORIDE HYDROCHLORIDE\HYDROCHLOROTHIAZIDE

REACTIONS (9)
  - Cough [None]
  - Leukopenia [None]
  - Pneumonia [None]
  - Acute kidney injury [None]
  - Tremor [None]
  - Vomiting [None]
  - Toxicity to various agents [None]
  - Infection [None]
  - Drug interaction [None]

NARRATIVE: CASE EVENT DATE: 20240927
